FAERS Safety Report 4595026-1 (Version None)
Quarter: 2005Q1

REPORT INFORMATION
  Report Type: 
  Country: None (occurrence: None)
  Receive Date: 20050224
  Receipt Date: 20020703
  Transmission Date: 20050727
  Serious: Yes (Hospitalization)
  Sender: FDA-Public Use
  Company Number: GXKR2002GB00444

PATIENT
  Age: 76 Year
  Sex: Male

DRUGS (3)
  1. AMOXICILLIN AND CLAVULANATE POTASSIUM [Suspect]
     Indication: CELLULITIS
     Dosage: 1.2 G, INTRAVENOUS
     Route: 042
     Dates: start: 20020531, end: 20010531
  2. FLUCLOXACILLIN (NGX) (FLUCLOXACILLIN) [Suspect]
     Indication: CELLULITIS
     Dosage: 500 MG
     Dates: start: 20020531
  3. BENZYLPENICILLIN (BENZYLPENICILLIN) [Suspect]
     Indication: CELLULITIS
     Dosage: 1.2 G, INTRAVENOUS
     Route: 042
     Dates: start: 20020601, end: 20020602

REACTIONS (3)
  - HYPOTENSION [None]
  - PYREXIA [None]
  - RASH MACULO-PAPULAR [None]
